FAERS Safety Report 9300554 (Version 2)
Quarter: 2013Q2

REPORT INFORMATION
  Report Type: Spontaneous
  Country: CN (occurrence: CN)
  Receive Date: 20130521
  Receipt Date: 20130524
  Transmission Date: 20140414
  Serious: Yes (Other)
  Sender: FDA-Public Use
  Company Number: CN-PFIZER INC-2013154864

PATIENT
  Age: 59 Year
  Sex: Female

DRUGS (1)
  1. CORDARONE [Suspect]
     Indication: CARDIOVASCULAR DISORDER
     Dosage: 0.4 G, 3X/DAY
     Route: 048
     Dates: start: 20120801, end: 20120804

REACTIONS (5)
  - Convulsion [Recovered/Resolved]
  - Dizziness [Recovered/Resolved]
  - Fatigue [Recovered/Resolved]
  - Tremor [Recovered/Resolved]
  - Supraventricular extrasystoles [Unknown]
